FAERS Safety Report 7258109-3 (Version None)
Quarter: 2011Q1

REPORT INFORMATION
  Report Type: 
  Country: None (occurrence: None)
  Receive Date: 20110129
  Receipt Date: 20100703
  Transmission Date: 20110831
  Serious: No
  Sender: FDA-Public Use
  Company Number: US-ABBOTT-10P-163-0655533-00

PATIENT
  Age: 56 Year
  Sex: Male

DRUGS (2)
  1. ARAVA [Concomitant]
     Indication: PRODUCT USED FOR UNKNOWN INDICATION
  2. HUMIRA [Suspect]
     Indication: RHEUMATOID ARTHRITIS
     Dosage: EOW
     Dates: start: 20070101

REACTIONS (2)
  - FURUNCLE [None]
  - SWELLING FACE [None]
